FAERS Safety Report 24278261 (Version 1)
Quarter: 2024Q3

REPORT INFORMATION
  Report Type: Spontaneous
  Country: US (occurrence: US)
  Receive Date: 20240903
  Receipt Date: 20240903
  Transmission Date: 20241016
  Serious: No
  Sender: PFIZER
  Company Number: US-PFIZER INC-202400245068

PATIENT
  Age: 70 Year
  Sex: Female

DRUGS (1)
  1. XELJANZ XR [Suspect]
     Active Substance: TOFACITINIB CITRATE
     Indication: Psoriasis
     Dosage: TAKE 1 TABLET (11 MG) BY MOUTH IN THE MORNING
     Route: 048

REACTIONS (4)
  - Arthralgia [Unknown]
  - Musculoskeletal stiffness [Unknown]
  - Dry eye [Unknown]
  - Off label use [Unknown]
